FAERS Safety Report 14532248 (Version 2)
Quarter: 2018Q1

REPORT INFORMATION
  Report Type: Spontaneous
  Country: US (occurrence: US)
  Receive Date: 20180214
  Receipt Date: 20180223
  Transmission Date: 20180509
  Serious: No
  Sender: FDA-Public Use
  Company Number: US-TAIHO ONCOLOGY INC-EU-2018-00158

PATIENT
  Sex: Female

DRUGS (14)
  1. PREMARIN [Concomitant]
     Active Substance: ESTROGENS, CONJUGATED
     Dosage: NI
  2. ATIVAN [Concomitant]
     Active Substance: LORAZEPAM
     Dosage: NI
  3. OXYCODONE [Concomitant]
     Active Substance: OXYCODONE
     Dosage: NI
  4. PANTOPRAZOLE SODIUM SESQUIHYDRATE [Concomitant]
     Active Substance: PANTOPRAZOLE SODIUM
     Dosage: NI
  5. ENOXAPARIN [Concomitant]
     Active Substance: ENOXAPARIN
     Dosage: NI
  6. NEURONTIN [Concomitant]
     Active Substance: GABAPENTIN
     Dosage: NI
  7. VANCOMYCIN [Concomitant]
     Active Substance: VANCOMYCIN
     Dosage: NI
  8. GLUCOPHAGE [Concomitant]
     Active Substance: METFORMIN HYDROCHLORIDE
     Dosage: NI
  9. FENTANYL. [Concomitant]
     Active Substance: FENTANYL
     Dosage: NI
  10. MOTRIN [Concomitant]
     Active Substance: IBUPROFEN
     Dosage: NI
  11. LOMOTIL [Concomitant]
     Active Substance: ATROPINE SULFATE\DIPHENOXYLATE HYDROCHLORIDE
     Dosage: NI
  12. LONSURF [Suspect]
     Active Substance: TIPIRACIL HYDROCHLORIDE\TRIFLURIDINE
     Indication: COLON CANCER
     Route: 048
     Dates: start: 20170909, end: 201711
  13. LIDOCAINE/PRILOCAINE [Concomitant]
     Dosage: NI
  14. PROCHLORPERAZINE. [Concomitant]
     Active Substance: PROCHLORPERAZINE
     Dosage: NI

REACTIONS (1)
  - Amnesia [Unknown]

NARRATIVE: CASE EVENT DATE: 2017
